FAERS Safety Report 7370830-5 (Version None)
Quarter: 2011Q1

REPORT INFORMATION
  Report Type: 
  Country: None (occurrence: None)
  Receive Date: 20110324
  Receipt Date: 20110316
  Transmission Date: 20110831
  Serious: No
  Sender: FDA-Public Use
  Company Number: US-BIOGENIDEC-2010BI018606

PATIENT
  Age: 40 Year
  Sex: Female

DRUGS (2)
  1. AMPYRA [Concomitant]
     Dates: start: 20100514
  2. TYSABRI [Suspect]
     Indication: MULTIPLE SCLEROSIS
     Route: 042
     Dates: start: 20080923

REACTIONS (6)
  - SWELLING [None]
  - BACK PAIN [None]
  - ABDOMINAL DISCOMFORT [None]
  - FATIGUE [None]
  - MUSCULOSKELETAL STIFFNESS [None]
  - NAUSEA [None]
